FAERS Safety Report 8252845-8 (Version None)
Quarter: 2012Q2

REPORT INFORMATION
  Report Type: 
  Country: None (occurrence: None)
  Receive Date: 20120402
  Receipt Date: 20120123
  Transmission Date: 20120825
  Serious: No
  Sender: FDA-Public Use
  Company Number: US-ABBOTT-12P-163-0903588-00

PATIENT
  Sex: Male
  Weight: 86.26 kg

DRUGS (5)
  1. VITAMIN D [Concomitant]
     Indication: HYPOVITAMINOSIS
  2. ANDROGEL [Suspect]
     Dosage: FOUR PUMPS
     Dates: start: 20120101
  3. MULTI-VITAMINS [Concomitant]
     Indication: VITAMIN SUPPLEMENTATION
  4. ANDROGEL [Suspect]
     Indication: BLOOD TESTOSTERONE DECREASED
     Dosage: TWO PUMPS
     Dates: start: 20120101, end: 20120101
  5. VITAMIN B-12 [Concomitant]
     Indication: HYPOVITAMINOSIS

REACTIONS (2)
  - ASTHENIA [None]
  - DRUG INEFFECTIVE [None]
